FAERS Safety Report 4778440-0 (Version None)
Quarter: 2005Q3

REPORT INFORMATION
  Report Type: 
  Country: None (occurrence: None)
  Receive Date: 20050923
  Receipt Date: 20050923
  Transmission Date: 20060218
  Serious: Yes (Hospitalization)
  Sender: FDA-Public Use
  Company Number: None

PATIENT
  Sex: Female
  Weight: 48.9885 kg

DRUGS (2)
  1. RITUXIMAB      GENENTECH [Suspect]
     Indication: FOLLICLE CENTRE LYMPHOMA, FOLLICULAR GRADE I, II, III
     Dosage: 375MG/KG   Q3WKS; WEEKLY X 4    IV
     Route: 042
     Dates: start: 20050608, end: 20050914
  2. ZEVALIN [Suspect]
     Dosage: 0.4 MCI/KG   X1      IV BOLUS
     Route: 040
     Dates: start: 20050822, end: 20050829

REACTIONS (6)
  - ARTHRALGIA [None]
  - CARDIAC DISORDER [None]
  - MYALGIA [None]
  - PAIN [None]
  - PYREXIA [None]
  - TACHYCARDIA [None]
